FAERS Safety Report 25621465 (Version 1)
Quarter: 2025Q3

REPORT INFORMATION
  Report Type: Spontaneous
  Country: CA (occurrence: CA)
  Receive Date: 20250730
  Receipt Date: 20250730
  Transmission Date: 20251020
  Serious: Yes (Other)
  Sender: RANBAXY
  Company Number: CA-SUN PHARMACEUTICAL INDUSTRIES LTD-2025R1-519525

PATIENT
  Age: 50 Year
  Sex: Female

DRUGS (3)
  1. DOMPERIDONE [Interacting]
     Active Substance: DOMPERIDONE
     Indication: Nausea
     Dosage: 10 MILLIGRAM, TID
     Route: 065
  2. DESVENLAFAXINE [Interacting]
     Active Substance: DESVENLAFAXINE
     Indication: Depression
     Route: 065
  3. DESVENLAFAXINE [Interacting]
     Active Substance: DESVENLAFAXINE
     Route: 065

REACTIONS (2)
  - Antidepressant discontinuation syndrome [Recovered/Resolved]
  - Drug interaction [Recovered/Resolved]
